FAERS Safety Report 6139727-2 (Version None)
Quarter: 2009Q1

REPORT INFORMATION
  Report Type: 
  Country: None (occurrence: None)
  Receive Date: 20090324
  Receipt Date: 20090316
  Transmission Date: 20090719
  Serious: Yes (Death, Hospitalization)
  Sender: FDA-Public Use
  Company Number: CLOF-1000414

PATIENT
  Age: 77 Year
  Sex: Female

DRUGS (7)
  1. EVOLTRA (CLOFARABINE) SOLUTION FOR INFUSION [Suspect]
     Indication: MYELOID LEUKAEMIA
     Dosage: 42 MG, QDX5, INTRAVENOUS
     Route: 042
     Dates: start: 20090107, end: 20090111
  2. DAUNORUBICIN HCL [Suspect]
     Indication: MYELOID LEUKAEMIA
     Dosage: 105 MG, QDX3, INTRAVENOUS, 105 MG, QDX3
     Route: 042
     Dates: start: 20090107, end: 20090107
  3. DAUNORUBICIN HCL [Suspect]
     Indication: MYELOID LEUKAEMIA
     Dosage: 105 MG, QDX3, INTRAVENOUS, 105 MG, QDX3
     Route: 042
     Dates: start: 20090109, end: 20090110
  4. LEVOTHYROXINE SODIUM [Concomitant]
  5. ALLOPURINOL [Concomitant]
  6. ACETAMINOPHEN [Concomitant]
  7. ONDANSETRON HCL [Concomitant]

REACTIONS (7)
  - ACUTE MYELOID LEUKAEMIA [None]
  - CARDIAC ARREST [None]
  - CLOSTRIDIUM DIFFICILE TOXIN TEST POSITIVE [None]
  - LEFT VENTRICULAR FAILURE [None]
  - MYOCARDIAL ISCHAEMIA [None]
  - NEUTROPENIC SEPSIS [None]
  - RENAL FAILURE ACUTE [None]
